FAERS Safety Report 4355537-0 (Version None)
Quarter: 2004Q2

REPORT INFORMATION
  Report Type: 
  Country: None (occurrence: None)
  Receive Date: 20040510
  Receipt Date: 20040505
  Transmission Date: 20050107
  Serious: Yes (Hospitalization)
  Sender: FDA-Public Use
  Company Number: US-BRISTOL-MYERS SQUIBB COMPANY-12579967

PATIENT
  Age: 56 Year
  Sex: Female

DRUGS (3)
  1. CARBOPLATIN [Suspect]
     Indication: BREAST CANCER METASTATIC
     Dosage: CYCLE 4 WEEK 3
     Route: 042
     Dates: end: 20040201
  2. TAXOTERE [Suspect]
     Indication: BREAST CANCER METASTATIC
     Dosage: CYCLE 4 WEEK 3
     Route: 042
     Dates: end: 20040201
  3. HERCEPTIN [Suspect]
     Indication: BREAST CANCER METASTATIC
     Dosage: CYCLE 4 WEEK 3
     Route: 042
     Dates: end: 20040201

REACTIONS (3)
  - BREAST CANCER METASTATIC [None]
  - HEADACHE [None]
  - PLEURAL EFFUSION [None]
